FAERS Safety Report 9319592 (Version 14)
Quarter: 2016Q4

REPORT INFORMATION
  Report Type: Spontaneous
  Country: US (occurrence: US)
  Receive Date: 20130530
  Receipt Date: 20161111
  Transmission Date: 20170207
  Serious: Yes (Other)
  Sender: FDA-Public Use
  Company Number: US-GLAXOSMITHKLINE-A1010440A

PATIENT
  Age: 56 Year
  Sex: Female
  Weight: 111 kg

DRUGS (17)
  1. FLOLAN [Suspect]
     Active Substance: EPOPROSTENOL SODIUM
     Indication: PULMONARY ARTERIAL HYPERTENSION
     Dosage: 28.5 NG/KG/MIN CONTINUOUSLY, 1.5 MG VIALCONCENTRATION: 60,000 NG/MLPUMP RATE: 70 ML/DAY
     Route: 042
     Dates: start: 20070111
  2. FLOLAN [Suspect]
     Active Substance: EPOPROSTENOL SODIUM
     Dosage: 28.5 NG/KG/MIN (CONCENTRATION 60,000 NG/ML, PUMP RATE 70 ML/DAY, VIAL STRENGTH 1.5), CO
     Route: 042
  3. FLOLAN [Suspect]
     Active Substance: EPOPROSTENOL SODIUM
     Dosage: 28.5 NG/KG/MIN, CONTINUOUS
     Dates: start: 20070111
  4. FLOLAN [Suspect]
     Active Substance: EPOPROSTENOL SODIUM
     Dosage: 28.5 NG/KG/MIN, CONTINUOUS
  5. FLOLAN [Suspect]
     Active Substance: EPOPROSTENOL SODIUM
     Dosage: 28.5 NG/KG/MIN (CONCENTRATION 60,000 NG/ML, PUMP RATE 70 ML/DAY, VIAL STRENGTH 1.5 MG), CO
     Route: 042
  6. FLOLAN [Suspect]
     Active Substance: EPOPROSTENOL SODIUM
     Indication: PULMONARY ARTERIAL HYPERTENSION
  7. SILDENAFIL. [Concomitant]
     Active Substance: SILDENAFIL
     Dosage: UNK
  8. FLOLAN [Suspect]
     Active Substance: EPOPROSTENOL SODIUM
     Dosage: UNK
     Dates: start: 20070112
  9. FLOLAN [Suspect]
     Active Substance: EPOPROSTENOL SODIUM
     Dosage: 28.5 NG/KG/MIN (CONCENTRATION 60,000 NG/ML, PUMP RATE 70 ML/DAY, VIAL STRENGTH 1.5 MG), CO
     Route: 042
  10. COUMADIN [Concomitant]
     Active Substance: WARFARIN SODIUM
     Dosage: UNK
  11. FLOLAN [Suspect]
     Active Substance: EPOPROSTENOL SODIUM
     Dosage: 28.5 NG/KG/MIN, CONTINUOUS
  12. FLOLAN [Suspect]
     Active Substance: EPOPROSTENOL SODIUM
     Dosage: UNK
     Dates: start: 20070112
  13. REVATIO [Concomitant]
     Active Substance: SILDENAFIL CITRATE
     Dosage: UNK
  14. FLOLAN [Suspect]
     Active Substance: EPOPROSTENOL SODIUM
     Dosage: UNK
     Dates: start: 20070112
  15. FLOLAN [Suspect]
     Active Substance: EPOPROSTENOL SODIUM
     Dosage: 28.5 NG/KG/MIN CO
     Dates: start: 20070111
  16. FLOLAN [Suspect]
     Active Substance: EPOPROSTENOL SODIUM
     Dosage: UNK
     Dates: start: 20070112
  17. FLOLAN [Suspect]
     Active Substance: EPOPROSTENOL SODIUM
     Dosage: 22 NG/KG/MIN
     Dates: start: 20070111

REACTIONS (16)
  - Application site acne [Unknown]
  - Complication associated with device [Unknown]
  - Nasopharyngitis [Not Recovered/Not Resolved]
  - Diarrhoea [Not Recovered/Not Resolved]
  - Skin irritation [Unknown]
  - Central venous catheterisation [Unknown]
  - Sinusitis [Unknown]
  - Skin disorder [Unknown]
  - Pneumonia [Unknown]
  - Dyspnoea [Recovered/Resolved]
  - Skin infection [Unknown]
  - Malaise [Unknown]
  - Carpal tunnel syndrome [Unknown]
  - Urticaria [Unknown]
  - Rash [Unknown]
  - Device leakage [Unknown]

NARRATIVE: CASE EVENT DATE: 201409
